FAERS Safety Report 18197089 (Version 1)
Quarter: 2020Q3

REPORT INFORMATION
  Report Type: Spontaneous
  Country: US (occurrence: US)
  Receive Date: 20200825
  Receipt Date: 20200825
  Transmission Date: 20201103
  Serious: No
  Sender: FDA-Public Use
  Company Number: None

PATIENT
  Age: 56 Year
  Sex: Female

DRUGS (4)
  1. TRAMADOL. [Concomitant]
     Active Substance: TRAMADOL
  2. TALZENNA [Suspect]
     Active Substance: TALAZOPARIB TOSYLATE
     Indication: BREAST CANCER FEMALE
     Route: 048
     Dates: end: 20200825
  3. ESCITALOPRAM [Concomitant]
     Active Substance: ESCITALOPRAM OXALATE
  4. SANCUSO [Concomitant]
     Active Substance: GRANISETRON

REACTIONS (3)
  - Syncope [None]
  - Lower limb fracture [None]
  - Fall [None]

NARRATIVE: CASE EVENT DATE: 20200825
